FAERS Safety Report 25413914 (Version 1)
Quarter: 2025Q2

REPORT INFORMATION
  Report Type: Spontaneous
  Country: US (occurrence: US)
  Receive Date: 20250609
  Receipt Date: 20250609
  Transmission Date: 20250716
  Serious: No
  Sender: MILLICENT HOLDINGS
  Company Number: US-CCHMC-MILL20250250

PATIENT
  Age: 64 Year
  Sex: Female

DRUGS (2)
  1. FEMRING [Suspect]
     Active Substance: ESTRADIOL ACETATE
     Indication: Uterine cervix atrophy
     Route: 067
     Dates: start: 202412, end: 202503
  2. FEMRING [Suspect]
     Active Substance: ESTRADIOL ACETATE
     Indication: Dyspareunia

REACTIONS (3)
  - Intermenstrual bleeding [Recovered/Resolved]
  - Cervix enlargement [Unknown]
  - Product use in unapproved indication [None]

NARRATIVE: CASE EVENT DATE: 20241201
